FAERS Safety Report 5144164-3 (Version None)
Quarter: 2006Q4

REPORT INFORMATION
  Report Type: 
  Country: None (occurrence: None)
  Receive Date: 20061106
  Receipt Date: 20061027
  Transmission Date: 20070319
  Serious: Yes (Hospitalization)
  Sender: FDA-Public Use
  Company Number: ES-JNJFOC-20060905264

PATIENT
  Age: 42 Year
  Sex: Male

DRUGS (3)
  1. REMICADE [Suspect]
     Indication: COLITIS ULCERATIVE
     Dosage: 10 DOSES
     Route: 042
  2. CORTICOIDS [Concomitant]
     Route: 065
  3. IMUREL [Concomitant]
     Route: 065

REACTIONS (1)
  - CYTOMEGALOVIRUS GASTROINTESTINAL INFECTION [None]
